FAERS Safety Report 18526200 (Version 1)
Quarter: 2020Q4

REPORT INFORMATION
  Report Type: Spontaneous
  Country: GB (occurrence: GB)
  Receive Date: 20201120
  Receipt Date: 20201120
  Transmission Date: 20210114
  Serious: Yes (Other)
  Sender: FDA-Public Use
  Company Number: GB-TEVA-2020-GB-1850163

PATIENT
  Age: 52 Year
  Sex: Female

DRUGS (11)
  1. PROPYLTHIOURACIL. [Concomitant]
     Active Substance: PROPYLTHIOURACIL
     Dosage: 400MG
  2. OMEPRAZOLE. [Concomitant]
     Active Substance: OMEPRAZOLE
     Dosage: 20MG
  3. PROMETHAZINE HYDROCHLORIDE. [Suspect]
     Active Substance: PROMETHAZINE HYDROCHLORIDE
     Indication: ANXIETY
     Dosage: 25-50MG AS NEEDED. MAX 100MG DAILY. 3 DOSES OF 25MG 12/10 21:00, 13/10 13:05, 14/10 02:15.UNIT DOSE
     Route: 048
     Dates: start: 20201012, end: 20201015
  4. DOCUSATE SODIUM. [Concomitant]
     Active Substance: DOCUSATE SODIUM
  5. QUININE SULFATE. [Concomitant]
     Active Substance: QUININE SULFATE
     Dosage: 1DF
  6. PREGABALIN. [Concomitant]
     Active Substance: PREGABALIN
     Dosage: 300MG IN MORNING, 150MG AT NIGHT.UNIT DOSE 450MG
  7. MOVICOL [Concomitant]
     Active Substance: POLYETHYLENE GLYCOL 3350\POTASSIUM CHLORIDE\SODIUM BICARBONATE\SODIUM CHLORIDE
     Dosage: 2DF
  8. ACAMPROSATE [Concomitant]
     Active Substance: ACAMPROSATE
     Dosage: 99MG
  9. APIXABAN [Concomitant]
     Active Substance: APIXABAN
     Dosage: 10MG
  10. VITAMIN D [Concomitant]
     Active Substance: VITAMIN D NOS
     Dosage: 800IU
  11. PROPRANOLOL [Concomitant]
     Active Substance: PROPRANOLOL HYDROCHLORIDE
     Dosage: 120MG

REACTIONS (3)
  - Aphasia [Unknown]
  - Movement disorder [Recovered/Resolved]
  - Facial spasm [Recovered/Resolved]

NARRATIVE: CASE EVENT DATE: 20201012
